FAERS Safety Report 7748892 (Version 2)
Quarter: 2015Q3

REPORT INFORMATION
  Report Type: Spontaneous
  Country: JP (occurrence: JP)
  Receive Date: 20110105
  Receipt Date: 20150731
  Transmission Date: 20151125
  Serious: Yes (Hospitalization, Other)
  Sender: FDA-Public Use
  Company Number: PHHY2010JP18042

PATIENT
  Age: 23 Year
  Sex: Male
  Weight: 85 kg

DRUGS (6)
  1. VOLTAREN [Suspect]
     Active Substance: DICLOFENAC SODIUM
     Indication: BACK PAIN
     Dosage: 25 MG, PRN
     Route: 048
     Dates: start: 20100311, end: 201003
  2. NEUROTROPIN [Suspect]
     Active Substance: NEUROTROPIN
     Indication: BACK PAIN
     Dosage: 4 DF, UNK (16 IU)
     Route: 048
     Dates: start: 20100311, end: 20100312
  3. EPELIN [Suspect]
     Active Substance: PHENYTOIN
     Indication: BACK PAIN
     Dosage: UNK
     Route: 048
     Dates: start: 20100311
  4. VOLTAREN [Suspect]
     Active Substance: DICLOFENAC SODIUM
     Dosage: UNK
     Route: 048
     Dates: start: 20100311
  5. VOLTAREN [Suspect]
     Active Substance: DICLOFENAC SODIUM
     Indication: INTERVERTEBRAL DISC PROTRUSION
     Dosage: 50 MG, QD
     Route: 048
     Dates: start: 20100311, end: 20100312
  6. MUCOSTA [Suspect]
     Active Substance: REBAMIPIDE
     Indication: GASTRITIS PROPHYLAXIS
     Dosage: 300 MG, UNK
     Route: 048
     Dates: start: 20100311, end: 20100312

REACTIONS (6)
  - Drug hypersensitivity [Recovered/Resolved]
  - Blood pressure decreased [Unknown]
  - Generalised erythema [Recovered/Resolved]
  - Drug reaction with eosinophilia and systemic symptoms [Recovered/Resolved]
  - Dyspnoea [Recovered/Resolved]
  - Pruritus generalised [Recovered/Resolved]

NARRATIVE: CASE EVENT DATE: 20100311
